FAERS Safety Report 4533542-9 (Version None)
Quarter: 2005Q1

REPORT INFORMATION
  Report Type: 
  Country: None (occurrence: None)
  Receive Date: 20041206
  Receipt Date: 20041004
  Transmission Date: 20050727
  Serious: No
  Sender: FDA-Public Use
  Company Number: USA041080080

PATIENT
  Age: 39 Year
  Sex: Female

DRUGS (1)
  1. CYMBALTA [Suspect]
     Indication: DIABETIC NEUROPATHY
     Dosage: 30 MG DAY
     Dates: start: 20041001

REACTIONS (1)
  - TREMOR [None]
